FAERS Safety Report 21262971 (Version 2)
Quarter: 2022Q3

REPORT INFORMATION
  Report Type: Report from Study
  Country: CN (occurrence: None)
  Receive Date: 20220828
  Receipt Date: 20220830
  Transmission Date: 20221026
  Serious: Yes (Hospitalization)
  Sender: FDA-Public Use
  Company Number: CN-ROCHE-3165239

PATIENT
  Age: 68 Year
  Sex: Male
  Weight: 73 kg

DRUGS (5)
  1. GLOFITAMAB [Suspect]
     Active Substance: GLOFITAMAB
     Indication: Diffuse large B-cell lymphoma
     Dosage: DATE OF MOST RECENT DOSE OF STUDY DRUG PRIOR TO SAE 04/AUG/2022
     Route: 042
     Dates: start: 20220202
  2. OBINUTUZUMAB [Suspect]
     Active Substance: OBINUTUZUMAB
     Indication: Diffuse large B-cell lymphoma
     Dosage: DATE OF MOST RECENT DOSE OF STUDY DRUG PRIOR TO SAE 25/JAN/2022
     Route: 042
     Dates: start: 20220125
  3. TOCILIZUMAB [Suspect]
     Active Substance: TOCILIZUMAB
     Indication: Diffuse large B-cell lymphoma
     Dosage: DATE OF MOST RECENT DOSE 584 MG OF STUDY DRUG PRIOR TO SAE 26/APR/2022
     Route: 042
  4. GEMCITABINE [Suspect]
     Active Substance: GEMCITABINE
     Indication: Diffuse large B-cell lymphoma
     Dosage: DATE OF MOST RECENT DOSE OF STUDY DRUG PRIOR TO SAE 14/JUL/2022
     Route: 042
     Dates: start: 20220126
  5. OXALIPLATIN [Suspect]
     Active Substance: OXALIPLATIN
     Indication: Diffuse large B-cell lymphoma
     Dosage: DATE OF MOST RECENT DOSE OF STUDY DRUG PRIOR TO SAE 14/JUL/2022
     Route: 042
     Dates: start: 20220126

REACTIONS (1)
  - Pyrexia [Not Recovered/Not Resolved]

NARRATIVE: CASE EVENT DATE: 20220818
